FAERS Safety Report 16551461 (Version 7)
Quarter: 2020Q4

REPORT INFORMATION
  Report Type: Report from Study
  Country: DE (occurrence: DE)
  Receive Date: 20190710
  Receipt Date: 20201207
  Transmission Date: 20210113
  Serious: Yes (Other)
  Sender: FDA-Public Use
  Company Number: DE-SA-2019SA060145

PATIENT

DRUGS (4)
  1. ALEMTUZUMAB [Suspect]
     Active Substance: ALEMTUZUMAB
     Indication: MULTIPLE SCLEROSIS
     Dosage: 12 MG
     Route: 041
     Dates: start: 20180514, end: 20180516
  2. ALEMTUZUMAB [Suspect]
     Active Substance: ALEMTUZUMAB
     Dosage: 12 MG
     Route: 041
     Dates: start: 20170508, end: 20170512
  3. EUTHYROX [Concomitant]
     Active Substance: LEVOTHYROXINE SODIUM
     Indication: AUTOIMMUNE THYROIDITIS
     Dosage: 50 MG
     Route: 065
     Dates: start: 20190102
  4. L-THYROX [Concomitant]
     Active Substance: LEVOTHYROXINE SODIUM
     Indication: AUTOIMMUNE THYROIDITIS
     Dosage: 500 MG IU
     Route: 065
     Dates: start: 20160101, end: 20181019

REACTIONS (14)
  - Menopausal symptoms [Not Recovered/Not Resolved]
  - Dizziness [Recovered/Resolved]
  - Bone marrow disorder [Not Recovered/Not Resolved]
  - Migraine with aura [Recovered/Resolved]
  - Cystitis [Recovered/Resolved]
  - Cough [Recovered/Resolved]
  - Nausea [Recovered/Resolved]
  - Influenza [Recovered/Resolved]
  - Cystitis [Recovered/Resolved]
  - Hormone level abnormal [Not Recovered/Not Resolved]
  - Neutropenia [Not Recovered/Not Resolved]
  - Cystitis noninfective [Recovered/Resolved]
  - Vitiligo [Not Recovered/Not Resolved]
  - Anaemia [Not Recovered/Not Resolved]

NARRATIVE: CASE EVENT DATE: 20181015
